FAERS Safety Report 8216719-0 (Version None)
Quarter: 2012Q1

REPORT INFORMATION
  Report Type: 
  Country: None (occurrence: None)
  Receive Date: 20120316
  Receipt Date: 20120314
  Transmission Date: 20120608
  Serious: Yes (Other)
  Sender: FDA-Public Use
  Company Number: FR-ROCHE-1033161

PATIENT
  Sex: Female

DRUGS (3)
  1. COZAAR [Concomitant]
     Indication: HYPERTENSION
  2. ASPIRIN [Concomitant]
     Indication: HYPERTENSION
  3. VEMURAFENIB [Suspect]
     Indication: METASTATIC MALIGNANT MELANOMA
     Route: 048
     Dates: start: 20120120

REACTIONS (4)
  - PYREXIA [None]
  - BLOOD CREATININE INCREASED [None]
  - HEADACHE [None]
  - MYALGIA [None]
